FAERS Safety Report 5724285-4 (Version None)
Quarter: 2008Q2

REPORT INFORMATION
  Report Type: 
  Country: None (occurrence: None)
  Receive Date: 20080430
  Receipt Date: 20080421
  Transmission Date: 20081010
  Serious: Yes (Hospitalization)
  Sender: FDA-Public Use
  Company Number: ES-PFIZER INC-2008034593

PATIENT
  Age: 91 Year
  Sex: Female

DRUGS (5)
  1. ALDACTONE [Suspect]
     Indication: CARDIAC FAILURE CHRONIC
     Route: 048
     Dates: start: 20070701, end: 20070815
  2. PROPRANOLOL [Interacting]
     Dosage: DAILY DOSE:30MG-FREQ:EVERY DAY
  3. SEGURIL [Interacting]
     Indication: CARDIAC FAILURE CHRONIC
     Route: 048
  4. SEGURIL [Interacting]
     Route: 048
     Dates: start: 20070701, end: 20070815
  5. OMEPRAZOLE [Concomitant]
     Dosage: DAILY DOSE:20MG
     Route: 048

REACTIONS (2)
  - DRUG INTERACTION [None]
  - RENAL FAILURE ACUTE [None]
